FAERS Safety Report 4507087-6 (Version None)
Quarter: 2004Q4

REPORT INFORMATION
  Report Type: 
  Country: None (occurrence: None)
  Receive Date: 20041117
  Receipt Date: 20041013
  Transmission Date: 20050328
  Serious: Yes (Other)
  Sender: FDA-Public Use
  Company Number: 2004-DE-05605DE

PATIENT
  Age: 66 Year
  Sex: Female

DRUGS (1)
  1. MIRAPEX [Suspect]
     Route: 048
     Dates: start: 20010505, end: 20010715

REACTIONS (5)
  - COUGH [None]
  - GRAND MAL CONVULSION [None]
  - RENAL IMPAIRMENT [None]
  - THROAT TIGHTNESS [None]
  - VISUAL DISTURBANCE [None]
